FAERS Safety Report 14838858 (Version 1)
Quarter: 2018Q2

REPORT INFORMATION
  Report Type: Spontaneous
  Country: FI (occurrence: FI)
  Receive Date: 20180502
  Receipt Date: 20180502
  Transmission Date: 20180711
  Serious: Yes (Life-Threatening, Hospitalization, Other)
  Sender: FDA-Public Use
  Company Number: FI-MYLANLABS-2018M1011999

PATIENT
  Age: 33 Year
  Sex: Male

DRUGS (6)
  1. LEPONEX [Suspect]
     Active Substance: CLOZAPINE
     Dosage: 500 MG, QD
     Route: 048
     Dates: start: 2018
  2. LORAZEPAM ORIFARM [Concomitant]
     Indication: PRODUCT USED FOR UNKNOWN INDICATION
     Dosage: 1 MG, AM
  3. LEPONEX [Suspect]
     Active Substance: CLOZAPINE
     Dosage: 400 MG, QD
     Route: 048
  4. LEPONEX [Suspect]
     Active Substance: CLOZAPINE
     Dosage: 400 MG, QD
     Route: 048
     Dates: start: 2018
  5. LEPONEX [Suspect]
     Active Substance: CLOZAPINE
     Indication: SCHIZOPHRENIA
     Dosage: 500 MG, QD
     Route: 048
  6. ABILIFY [Concomitant]
     Active Substance: ARIPIPRAZOLE
     Indication: PRODUCT USED FOR UNKNOWN INDICATION
     Dosage: 15 MG, QD

REACTIONS (10)
  - Pulmonary infarction [Unknown]
  - Antiphospholipid antibodies positive [Unknown]
  - Antipsychotic drug level above therapeutic [Recovered/Resolved]
  - Pupillary reflex impaired [Unknown]
  - Akathisia [Unknown]
  - Russell^s viper venom time abnormal [Unknown]
  - Restlessness [Unknown]
  - Pulmonary embolism [Recovered/Resolved]
  - Miosis [Unknown]
  - Tremor [Unknown]

NARRATIVE: CASE EVENT DATE: 2017
